FAERS Safety Report 15829165 (Version 2)
Quarter: 2020Q1

REPORT INFORMATION
  Report Type: Spontaneous
  Country: US (occurrence: US)
  Receive Date: 20190115
  Receipt Date: 20200122
  Transmission Date: 20200409
  Serious: No
  Sender: FDA-Public Use
  Company Number: US-ALLERGAN-1854199US

PATIENT
  Sex: Female

DRUGS (1)
  1. RESTASIS [Suspect]
     Active Substance: CYCLOSPORINE
     Indication: DRY EYE
     Dosage: UNK
     Route: 047

REACTIONS (5)
  - Product dropper issue [Unknown]
  - Product storage error [Unknown]
  - Incorrect dose administered [Unknown]
  - Intentional misuse of drug delivery system [Unknown]
  - Eye pain [Unknown]
